FAERS Safety Report 23551384 (Version 2)
Quarter: 2024Q1

REPORT INFORMATION
  Report Type: Spontaneous
  Country: US (occurrence: US)
  Receive Date: 20240222
  Receipt Date: 20240329
  Transmission Date: 20240410
  Serious: Yes (Hospitalization)
  Sender: FDA-Public Use
  Company Number: US-VIIV HEALTHCARE LIMITED-US2024019396

PATIENT

DRUGS (2)
  1. TIVICAY [Suspect]
     Active Substance: DOLUTEGRAVIR SODIUM
     Indication: Product used for unknown indication
     Dosage: 50 MG, BID
     Route: 048
     Dates: start: 201402
  2. TRUVADA [Concomitant]
     Active Substance: EMTRICITABINE\TENOFOVIR DISOPROXIL FUMARATE
     Indication: Product used for unknown indication
     Dosage: UNK, QD (200-300MG DAILY)
     Route: 048
     Dates: start: 201402

REACTIONS (1)
  - Dyspnoea [Unknown]
